FAERS Safety Report 26159027 (Version 1)
Quarter: 2025Q4

REPORT INFORMATION
  Report Type: Spontaneous
  Country: US (occurrence: None)
  Receive Date: 20251215
  Receipt Date: 20251215
  Transmission Date: 20260118
  Serious: No
  Sender: ENDO
  Company Number: US-ENDO USA, INC.-2025-001715

PATIENT
  Age: 22 Year
  Sex: Female
  Weight: 86.168 kg

DRUGS (2)
  1. TESTIM [Suspect]
     Active Substance: TESTOSTERONE
     Indication: Hormone replacement therapy
     Dosage: 50/5 MILLIGRAM PER GRAM, DAILY
     Route: 048
  2. TESTIM [Suspect]
     Active Substance: TESTOSTERONE
     Dosage: 50/5 MILLIGRAM PER GRAM, DAILY
     Route: 048

REACTIONS (2)
  - Dermatitis contact [Recovered/Resolved]
  - Off label use [Recovered/Resolved]

NARRATIVE: CASE EVENT DATE: 20241201
